FAERS Safety Report 24097317 (Version 1)
Quarter: 2024Q3

REPORT INFORMATION
  Report Type: Spontaneous
  Country: CN (occurrence: CN)
  Receive Date: 20240716
  Receipt Date: 20240716
  Transmission Date: 20241017
  Serious: Yes (Other)
  Sender: FRESENIUS KABI
  Company Number: CN-FreseniusKabi-FK202410699

PATIENT
  Age: 68 Year
  Sex: Male
  Weight: 47 kg

DRUGS (11)
  1. DEXTROSE [Suspect]
     Active Substance: DEXTROSE\DEXTROSE MONOHYDRATE
     Indication: Cachexia
     Dosage: FORM OF ADMIN: INJECTION?ROUTE OF ADMIN: INTRAVENOUS DRIP?THE INFUSION STARTED AT 11:20 ON 02/07 AND
     Dates: start: 20240701, end: 20240704
  2. DEXTROSE [Suspect]
     Active Substance: DEXTROSE\DEXTROSE MONOHYDRATE
     Indication: Parenteral nutrition
  3. DEXTROSE\SODIUM CHLORIDE [Suspect]
     Active Substance: DEXTROSE\SODIUM CHLORIDE
     Indication: Cachexia
     Dosage: FOA: INJECTION
     Route: 041
     Dates: start: 20240701, end: 20240704
  4. SMOFLIPID [Concomitant]
     Active Substance: FISH OIL\MEDIUM-CHAIN TRIGLYCERIDES\OLIVE OIL\SOYBEAN OIL
     Indication: Cachexia
     Dosage: FOA: INJECTION
     Route: 041
     Dates: start: 20240701, end: 20240704
  5. Novamin [Concomitant]
     Indication: Cachexia
     Dosage: FOA: INJECTION
     Route: 041
     Dates: start: 20240701, end: 20240704
  6. POTASSIUM PHOSPHATE, DIBASIC\POTASSIUM PHOSPHATE, MONOBASIC [Concomitant]
     Active Substance: POTASSIUM PHOSPHATE, DIBASIC\POTASSIUM PHOSPHATE, MONOBASIC
     Indication: Cachexia
     Dosage: FOA: INJECTION
     Route: 041
     Dates: start: 20240701, end: 20240704
  7. POTASSIUM CHLORIDE [Concomitant]
     Active Substance: POTASSIUM CHLORIDE
     Indication: Cachexia
     Dosage: FOA: INJECTION
     Route: 041
     Dates: start: 20240701, end: 20240704
  8. VITAMINS [Concomitant]
     Active Substance: VITAMINS
     Indication: Cachexia
     Dosage: FOA: INJECTION
     Route: 041
     Dates: start: 20240701, end: 20240704
  9. VITAMINS [Concomitant]
     Active Substance: VITAMINS
     Indication: Cachexia
     Dosage: FOA: INJECTION
     Route: 041
     Dates: start: 20240701, end: 20240704
  10. SODIUM CHLORIDE [Concomitant]
     Active Substance: SODIUM CHLORIDE
     Indication: Cachexia
     Dosage: FOA: INJECTION
     Route: 041
     Dates: start: 20240701, end: 20240704
  11. MAGNESIUM SULFATE [Concomitant]
     Active Substance: MAGNESIUM SULFATE\MAGNESIUM SULFATE HEPTAHYDRATE
     Indication: Cachexia
     Dosage: FOA: INJECTION
     Route: 041
     Dates: start: 20240701, end: 20240704

REACTIONS (1)
  - Hyperglycaemia [Not Recovered/Not Resolved]

NARRATIVE: CASE EVENT DATE: 20240702
